FAERS Safety Report 7412229-9 (Version None)
Quarter: 2011Q2

REPORT INFORMATION
  Report Type: 
  Country: None (occurrence: None)
  Receive Date: 20110413
  Receipt Date: 20110401
  Transmission Date: 20111010
  Serious: Yes (Other)
  Sender: FDA-Public Use
  Company Number: GB-JNJFOC-20110309349

PATIENT
  Sex: Female
  Weight: 56 kg

DRUGS (5)
  1. DARUNAVIR [Suspect]
     Indication: HIV INFECTION
     Route: 048
  2. KIVEXA [Suspect]
     Indication: HIV INFECTION
     Route: 065
  3. LORATADINE [Concomitant]
     Indication: ANTIALLERGIC THERAPY
     Route: 065
  4. TRUVADA [Suspect]
     Indication: HIV INFECTION
     Route: 065
  5. RITONAVIR [Suspect]
     Indication: HIV INFECTION
     Route: 065

REACTIONS (3)
  - LIP SWELLING [None]
  - MALAISE [None]
  - RASH GENERALISED [None]
